FAERS Safety Report 15798003 (Version 1)
Quarter: 2019Q1

REPORT INFORMATION
  Report Type: Spontaneous
  Country: US (occurrence: US)
  Receive Date: 20190108
  Receipt Date: 20190108
  Transmission Date: 20190417
  Serious: Yes (Hospitalization, Other)
  Sender: FDA-Public Use
  Company Number: US-GLAXOSMITHKLINE-US2019GSK001244

PATIENT
  Sex: Male

DRUGS (5)
  1. PREVACID [Suspect]
     Active Substance: LANSOPRAZOLE
     Dosage: 15 MG, UNK
     Route: 065
  2. PANTOPRAZOLE [Suspect]
     Active Substance: PANTOPRAZOLE
     Indication: PRODUCT USED FOR UNKNOWN INDICATION
     Dosage: 40 MG, QD
     Route: 048
  3. LANSOPRAZOLE. [Suspect]
     Active Substance: LANSOPRAZOLE
     Indication: PRODUCT USED FOR UNKNOWN INDICATION
     Dosage: 30 MG, UNK
     Route: 065
  4. PREVACID [Suspect]
     Active Substance: LANSOPRAZOLE
     Dosage: 30 MG, BID
  5. PREVACID [Suspect]
     Active Substance: LANSOPRAZOLE
     Indication: PRODUCT USED FOR UNKNOWN INDICATION
     Dosage: 30 MG, QD
     Route: 048

REACTIONS (19)
  - Chronic kidney disease [Unknown]
  - Diabetic nephropathy [Unknown]
  - Hydronephrosis [Unknown]
  - Pyelonephritis chronic [Unknown]
  - Hypertensive nephropathy [Unknown]
  - Nephrotic syndrome [Unknown]
  - Oedematous kidney [Unknown]
  - Renal cell carcinoma [Unknown]
  - Renal failure [Unknown]
  - Renal impairment [Unknown]
  - Nephrosclerosis [Unknown]
  - End stage renal disease [Unknown]
  - Renal atrophy [Unknown]
  - Renal cyst [Unknown]
  - Diabetic end stage renal disease [Unknown]
  - Nephrolithiasis [Unknown]
  - Ischaemic nephropathy [Unknown]
  - Acute kidney injury [Unknown]
  - Proteinuria [Unknown]
